FAERS Safety Report 17887211 (Version 6)
Quarter: 2020Q4

REPORT INFORMATION
  Report Type: Report from Study
  Country: US (occurrence: US)
  Receive Date: 20200612
  Receipt Date: 20201023
  Transmission Date: 20210113
  Serious: No
  Sender: FDA-Public Use
  Company Number: NVSC2020US163892

PATIENT
  Age: 46 Year
  Sex: Female

DRUGS (1)
  1. COSENTYX [Suspect]
     Active Substance: SECUKINUMAB
     Indication: PSORIASIS
     Dosage: UNK, QMO
     Route: 058
     Dates: start: 202005

REACTIONS (4)
  - Psoriasis [Unknown]
  - Pruritus [Unknown]
  - Diarrhoea [Unknown]
  - Nausea [Unknown]

NARRATIVE: CASE EVENT DATE: 202005
